FAERS Safety Report 5400545-1 (Version None)
Quarter: 2007Q3

REPORT INFORMATION
  Report Type: 
  Country: None (occurrence: None)
  Receive Date: 20070730
  Receipt Date: 20070724
  Transmission Date: 20080115
  Serious: Yes (Death, Other)
  Sender: FDA-Public Use
  Company Number: GB-ELI_LILLY_AND_COMPANY-GB200603005705

PATIENT
  Age: 26 Year
  Sex: Female
  Weight: 75.4 kg

DRUGS (6)
  1. FLUOXETINE [Suspect]
  2. ZYPREXA [Suspect]
     Dosage: 15 MG, UNK
     Dates: start: 20051220
  3. TRIMEPRAZINE [Concomitant]
  4. NITRAZEPAM [Concomitant]
  5. DIAZEPAM [Concomitant]
  6. MICROGYN [Concomitant]

REACTIONS (10)
  - ABNORMAL BEHAVIOUR [None]
  - COLD SWEAT [None]
  - COUGH [None]
  - EMOTIONAL DISTRESS [None]
  - HEADACHE [None]
  - HYPERHIDROSIS [None]
  - LOWER RESPIRATORY TRACT INFECTION [None]
  - PALLOR [None]
  - SUDDEN DEATH [None]
  - SYNCOPE [None]
